FAERS Safety Report 17386452 (Version 1)
Quarter: 2020Q1

REPORT INFORMATION
  Report Type: Spontaneous
  Country: TJ (occurrence: US)
  Receive Date: 20200206
  Receipt Date: 20200206
  Transmission Date: 20200409
  Serious: Yes (Other)
  Sender: FDA-Public Use
  Company Number: TJ-PFIZER INC-2020049176

PATIENT
  Age: 13 Year
  Sex: Female
  Weight: 38 kg

DRUGS (4)
  1. DELAMANID [Suspect]
     Active Substance: DELAMANID
     Indication: TUBERCULOSIS
     Dosage: 100 MG, 2X/DAY
     Dates: start: 20191128
  2. CYCLOSERINE. [Suspect]
     Active Substance: CYCLOSERINE
     Indication: TUBERCULOSIS
     Dosage: 500 MG, 1X/DAY
     Dates: start: 20191128
  3. LINEZOLID. [Suspect]
     Active Substance: LINEZOLID
     Indication: TUBERCULOSIS
     Dosage: 450 MG, 1X/DAY
     Dates: start: 20191128
  4. CLOFAZIMINE [Suspect]
     Active Substance: CLOFAZIMINE
     Indication: TUBERCULOSIS
     Dosage: 100 MG, 1X/DAY
     Dates: start: 20191128

REACTIONS (5)
  - Hallucination, visual [Recovered/Resolved]
  - Nausea [Unknown]
  - Headache [Unknown]
  - Hypnopompic hallucination [Unknown]
  - Fear [Unknown]

NARRATIVE: CASE EVENT DATE: 20200112
